FAERS Safety Report 15562599 (Version 1)
Quarter: 2018Q4

REPORT INFORMATION
  Report Type: Report from Study
  Country: GB (occurrence: GB)
  Receive Date: 20181029
  Receipt Date: 20181029
  Transmission Date: 20190205
  Serious: Yes (Death)
  Sender: FDA-Public Use
  Company Number: GB-PFIZER INC-2018437693

PATIENT
  Sex: Female

DRUGS (5)
  1. CETUXIMAB. [Suspect]
     Active Substance: CETUXIMAB
     Dosage: 250 MG/M2, WEEKLY (MAINTENANCE DOSE)
     Route: 042
  2. CETUXIMAB. [Suspect]
     Active Substance: CETUXIMAB
     Indication: SQUAMOUS CELL CARCINOMA OF HEAD AND NECK
     Dosage: 400 MG/M2, WEEKLY (LOADING DOSE)
     Route: 042
  3. CARBOPLATIN. [Suspect]
     Active Substance: CARBOPLATIN
     Indication: SQUAMOUS CELL CARCINOMA OF HEAD AND NECK
     Dosage: UNK, CYCLIC (AREA UNDER THE CURVE [AUC] OF 5 FOR 6 CYCLES)
     Route: 042
  4. PATRITUMAB [Suspect]
     Active Substance: PATRITUMAB
     Dosage: 9 MG/KG, EVERY 3 WEEKS (MAINTENANCE DOSE)
     Route: 042
  5. PATRITUMAB [Suspect]
     Active Substance: PATRITUMAB
     Indication: SQUAMOUS CELL CARCINOMA OF HEAD AND NECK
     Dosage: 18 MG/KG, EVERY 3 WEEKS (LOADING DOSE)
     Route: 042

REACTIONS (1)
  - Cardiac arrest [Fatal]
